FAERS Safety Report 16656223 (Version 1)
Quarter: 2019Q3

REPORT INFORMATION
  Report Type: Spontaneous
  Country: CA (occurrence: CA)
  Receive Date: 20190801
  Receipt Date: 20190801
  Transmission Date: 20191004
  Serious: Yes (Other)
  Sender: FDA-Public Use
  Company Number: CA-TEVA-2019-CA-1084955

PATIENT
  Sex: Male

DRUGS (1)
  1. PREDNISONE. [Suspect]
     Active Substance: PREDNISONE
     Route: 065

REACTIONS (16)
  - Iritis [Unknown]
  - Increased appetite [Unknown]
  - Splenomegaly [Unknown]
  - Spinal pain [Unknown]
  - Weight increased [Unknown]
  - Angiotensin converting enzyme increased [Unknown]
  - C-reactive protein increased [Unknown]
  - Sarcoidosis [Unknown]
  - Drug intolerance [Unknown]
  - Bone lesion [Unknown]
  - Gait disturbance [Unknown]
  - Insomnia [Unknown]
  - Lymph nodes scan abnormal [Unknown]
  - Drug resistance [Unknown]
  - Uveitis [Unknown]
  - Skin lesion [Unknown]
